FAERS Safety Report 17554225 (Version 6)
Quarter: 2020Q2

REPORT INFORMATION
  Report Type: Spontaneous
  Country: US (occurrence: US)
  Receive Date: 20200318
  Receipt Date: 20200526
  Transmission Date: 20200713
  Serious: Yes (Hospitalization)
  Sender: FDA-Public Use
  Company Number: US-AMGEN INC.-USASP2020042152

PATIENT
  Age: 55 Year
  Sex: Female
  Weight: 86.62 kg

DRUGS (20)
  1. AMOXICILLIN AND CLAVULANATE POTASSIUM [AMOXICILLIN SODIUM;CLAVULANATE [Concomitant]
     Dosage: 875 MG; 125 MG
  2. ATORVASTATIN [Concomitant]
     Active Substance: ATORVASTATIN
  3. PIOGLITAZONE. [Concomitant]
     Active Substance: PIOGLITAZONE
  4. SUMATRIPTAN SUCCINATE. [Concomitant]
     Active Substance: SUMATRIPTAN SUCCINATE
     Indication: MIGRAINE
     Dosage: 100 MILLIGRAM, AS NECESSARY
     Route: 048
     Dates: start: 20200115
  5. NORTRIPTYLINE HCL [Concomitant]
     Active Substance: NORTRIPTYLINE HYDROCHLORIDE
     Indication: DIABETIC NEUROPATHY
     Dosage: 3 DOSAGE FORM, QHS; 25 MG; 50 MG
     Route: 048
     Dates: start: 20200115
  6. GLYBURIDE. [Concomitant]
     Active Substance: GLYBURIDE
     Indication: DIABETES MELLITUS
     Dosage: 5 MILLIGRAM, QD
  7. ACETAMINOPHEN AND CODEINE [Concomitant]
     Active Substance: ACETAMINOPHEN\CODEINE PHOSPHATE
     Dosage: 1 DOSAGE FORM, TID
     Route: 048
     Dates: start: 20200318
  8. METFORMIN HCL [Concomitant]
     Active Substance: METFORMIN HYDROCHLORIDE
     Dosage: 2 DOSAGE FORM, QD
     Route: 048
  9. ALBUTEROL SULFATE HFA [Concomitant]
     Active Substance: ALBUTEROL SULFATE
  10. ACETAMINOPHEN;HYDROCODONE [Concomitant]
     Active Substance: ACETAMINOPHEN\HYDROCODONE
     Dosage: 5 MG; 325 MG
  11. TYLENOL WITH CODEINE [Concomitant]
     Active Substance: ACETAMINOPHEN\CODEINE PHOSPHATE
     Indication: DIABETIC NEUROPATHY
  12. TOPAMAX [Concomitant]
     Active Substance: TOPIRAMATE
     Indication: MIGRAINE
     Dosage: 3 DOSAGE FORM, QD
     Route: 048
     Dates: start: 20200115
  13. LYRICA [Concomitant]
     Active Substance: PREGABALIN
     Dosage: 1 DOSAGE FORM, TID
     Route: 048
     Dates: start: 20200115
  14. XARELTO [Concomitant]
     Active Substance: RIVAROXABAN
     Dosage: 200 MILLIGRAM, QHS
     Route: 048
     Dates: start: 20200115
  15. LISINOPRIL. [Concomitant]
     Active Substance: LISINOPRIL
     Dosage: 1 DOSAGE FORM, QD
     Route: 048
  16. AIMOVIG [Suspect]
     Active Substance: ERENUMAB-AOOE
     Indication: MIGRAINE PROPHYLAXIS
     Dosage: 70 MILLIGRAM, QMO
     Route: 058
     Dates: start: 20200115
  17. AIMOVIG [Suspect]
     Active Substance: ERENUMAB-AOOE
     Dosage: 70 MILLIGRAM, QMO
     Route: 058
     Dates: end: 20200306
  18. PRAMIPEXOLE DIHYDROCHLORIDE. [Concomitant]
     Active Substance: PRAMIPEXOLE DIHYDROCHLORIDE
     Dosage: 3 DOSAGE FORM, QHS
     Route: 048
     Dates: start: 20200115
  19. CEPHALEXIN [CEFALEXIN] [Concomitant]
     Active Substance: CEPHALEXIN
  20. PREGABALIN. [Concomitant]
     Active Substance: PREGABALIN

REACTIONS (2)
  - Device difficult to use [Unknown]
  - Injection site abscess [Recovering/Resolving]

NARRATIVE: CASE EVENT DATE: 202002
